FAERS Safety Report 14699473 (Version 3)
Quarter: 2018Q2

REPORT INFORMATION
  Report Type: Spontaneous
  Country: BE (occurrence: BE)
  Receive Date: 20180330
  Receipt Date: 20180514
  Transmission Date: 20180711
  Serious: Yes (Other)
  Sender: FDA-Public Use
  Company Number: BE-NOVOPROD-592118

PATIENT
  Sex: Female
  Weight: 41.2 kg

DRUGS (3)
  1. NORDITROPIN [Suspect]
     Active Substance: SOMATROPIN
     Indication: TURNER^S SYNDROME
     Dosage: 1.50 MG, QD(LOWER DOSE THAN THE PRESET DOSE FOR A TURNER PATIENT)
     Route: 058
     Dates: start: 201511, end: 20180313
  2. VITAMIN D                          /00107901/ [Concomitant]
     Active Substance: ERGOCALCIFEROL
     Dosage: 1200 IE, QD
     Route: 065
  3. ESTRADIOL VALERATE. [Concomitant]
     Active Substance: ESTRADIOL VALERATE
     Dosage: 0.2 MG, QD
     Route: 065

REACTIONS (1)
  - Embryonal rhabdomyosarcoma [Unknown]
